FAERS Safety Report 7354864-2 (Version None)
Quarter: 2011Q1

REPORT INFORMATION
  Report Type: 
  Country: None (occurrence: None)
  Receive Date: 20110316
  Receipt Date: 20110309
  Transmission Date: 20110831
  Serious: Yes (Death, Other)
  Sender: FDA-Public Use
  Company Number: JP-ABBOTT-11P-087-0709658-00

PATIENT
  Sex: Male

DRUGS (4)
  1. HUMIRA [Suspect]
     Route: 058
     Dates: start: 20110221, end: 20110221
  2. HUMIRA [Suspect]
     Indication: CROHN'S DISEASE
     Route: 058
  3. PREDNISOLONE [Concomitant]
     Indication: CROHN'S DISEASE
     Dates: start: 20110214, end: 20110227
  4. MESALAZINE [Concomitant]
     Indication: CROHN'S DISEASE
     Dates: start: 20110214, end: 20110227

REACTIONS (3)
  - CROHN'S DISEASE [None]
  - HAEMORRHAGE [None]
  - PERITONITIS [None]
